FAERS Safety Report 23053638 (Version 2)
Quarter: 2023Q4

REPORT INFORMATION
  Report Type: Report from Study
  Country: US (occurrence: US)
  Receive Date: 20231011
  Receipt Date: 20231220
  Transmission Date: 20240110
  Serious: Yes (Death)
  Sender: FDA-Public Use
  Company Number: US-ABBVIE-5445277

PATIENT
  Sex: Male

DRUGS (1)
  1. LINZESS [Suspect]
     Active Substance: LINACLOTIDE
     Indication: Product used for unknown indication
     Dosage: STRENGTH 145 MICROGRAM; TAKE ONE CAPSULE BY MOUTH DAILY 30 MINUTES BEFORE FIRST MEAL OF THE DAY
     Route: 048

REACTIONS (1)
  - Throat cancer [Fatal]
